FAERS Safety Report 8763200 (Version 1)
Quarter: 2012Q4

REPORT INFORMATION
  Report Type: Spontaneous
  Country: US (occurrence: None)
  Receive Date: 20120830
  Receipt Date: 20120830
  Transmission Date: 20130627
  Serious: Yes (Life-Threatening)
  Sender: FDA-Public Use
  Company Number: None

PATIENT
  Age: 77 Year
  Sex: Male
  Weight: 85.5 kg

DRUGS (2)
  1. LISINOPRIL [Suspect]
     Indication: CONGESTIVE HEART FAILURE
     Route: 048
     Dates: start: 20100617, end: 20120331
  2. LISINOPRIL [Suspect]
     Indication: HYPERTENSION
     Route: 048
     Dates: start: 20100617, end: 20120331

REACTIONS (5)
  - Dyspnoea [None]
  - Oedema peripheral [None]
  - Brain natriuretic peptide increased [None]
  - Renal failure acute [None]
  - Hyperkalaemia [None]
